FAERS Safety Report 18529606 (Version 1)
Quarter: 2020Q4

REPORT INFORMATION
  Report Type: Spontaneous
  Country: JP (occurrence: JP)
  Receive Date: 20201120
  Receipt Date: 20201120
  Transmission Date: 20210114
  Serious: Yes (Hospitalization, Other)
  Sender: FDA-Public Use
  Company Number: JP-ALLERGAN-2045478US

PATIENT
  Sex: Female

DRUGS (6)
  1. ROXADUSTAT. [Suspect]
     Active Substance: ROXADUSTAT
     Indication: NEPHROGENIC ANAEMIA
     Dosage: 120.0MG UNKNOWN
     Route: 048
     Dates: start: 20201001, end: 20201103
  2. TRAMCET [Concomitant]
     Active Substance: ACETAMINOPHEN\TRAMADOL
     Indication: PRODUCT USED FOR UNKNOWN INDICATION
     Dosage: UNK
     Route: 065
  3. MANNITOL. [Concomitant]
     Active Substance: MANNITOL
     Dosage: 2 UNIT, UNK
     Route: 065
     Dates: start: 20201027, end: 20201027
  4. LINACLOTIDE - BP [Suspect]
     Active Substance: LINACLOTIDE
     Indication: CONSTIPATION
     Dosage: 0.25 MG, QOD
     Route: 048
     Dates: start: 20201015
  5. BUSCOPAN [Concomitant]
     Active Substance: BUTYLSCOPOLAMINE BROMIDE
     Indication: PRODUCT USED FOR UNKNOWN INDICATION
     Dosage: UNKNOWN
     Route: 065
  6. MANNITOL. [Concomitant]
     Active Substance: MANNITOL
     Indication: PRODUCT USED FOR UNKNOWN INDICATION
     Dosage: 2 UNIT, UNK
     Route: 065
     Dates: start: 20201024, end: 20201024

REACTIONS (4)
  - Gastrointestinal perforation [Unknown]
  - Shunt occlusion [Unknown]
  - Prescribed underdose [Unknown]
  - Off label use [Unknown]
